FAERS Safety Report 6976780-8 (Version None)
Quarter: 2010Q3

REPORT INFORMATION
  Report Type: 
  Country: None (occurrence: None)
  Receive Date: 20100910
  Receipt Date: 20100908
  Transmission Date: 20110219
  Serious: Yes (Life-Threatening, Hospitalization, Disabling, Other)
  Sender: FDA-Public Use
  Company Number: PHHY2009IE57803

PATIENT
  Sex: Male

DRUGS (17)
  1. CLOZARIL [Suspect]
     Indication: SCHIZOPHRENIA
     Dosage: 225 MG
     Dates: start: 20060724, end: 20100617
  2. CLOZARIL [Suspect]
     Dosage: 250 MG DAILY
     Route: 048
  3. CLOZARIL [Suspect]
     Dosage: 12.5MG/DAY
     Route: 048
  4. LITHIUM CARBONATE [Concomitant]
     Dosage: UNK
     Dates: start: 20091101
  5. RISPERIDONE [Concomitant]
     Dosage: 50 MG EVERY 2 WEEKS
  6. RISPERIDONE [Concomitant]
     Dosage: UNK
     Dates: start: 20091218
  7. CARBIMAZOLE [Concomitant]
     Dosage: UNK
     Dates: start: 20091101
  8. SULPIRIDE [Concomitant]
     Dosage: UNK
     Dates: start: 20060101
  9. DOLMATIL [Concomitant]
     Dosage: 300 MG
     Dates: start: 20060101
  10. ZIPRASIDONE HCL [Concomitant]
     Dosage: 40 MG, BID
     Dates: start: 20070101
  11. MIRTAZAPINE [Concomitant]
     Dosage: 15 MG NOCTE
     Dates: start: 20091201
  12. DOMPERIDONE [Concomitant]
     Dosage: 10 MG, TID
     Dates: start: 20091111
  13. INDERAL LA [Concomitant]
     Dosage: 240 MG DAILY
  14. ZOTON [Concomitant]
     Dosage: 30MG MANE
  15. CALOGEN [Concomitant]
     Dosage: 30 ML, TID
  16. LITHIUM CARBONATE [Concomitant]
     Dosage: 400 MG DAILY
  17. NUTRITION SUPPLEMENTS [Concomitant]
     Dosage: BD

REACTIONS (40)
  - ANGER [None]
  - APATHY [None]
  - BACTERIAL INFECTION [None]
  - BIPOLAR DISORDER [None]
  - BLOOD SODIUM INCREASED [None]
  - BLUNTED AFFECT [None]
  - C-REACTIVE PROTEIN INCREASED [None]
  - COGNITIVE DISORDER [None]
  - CONFUSIONAL STATE [None]
  - CONSCIOUSNESS FLUCTUATING [None]
  - DELIRIUM [None]
  - DEPRESSED LEVEL OF CONSCIOUSNESS [None]
  - DEPRESSED MOOD [None]
  - DYSKINESIA [None]
  - ENCEPHALOPATHY [None]
  - HYPERSOMNIA [None]
  - HYPERTHYROIDISM [None]
  - HYPOCALCAEMIA [None]
  - ILLOGICAL THINKING [None]
  - IMPAIRED SELF-CARE [None]
  - LIVER FUNCTION TEST ABNORMAL [None]
  - LYMPHOCYTE COUNT INCREASED [None]
  - MECHANICAL VENTILATION [None]
  - MUSCULAR WEAKNESS [None]
  - NEGATIVISM [None]
  - NEUROPATHY PERIPHERAL [None]
  - PARALYSIS [None]
  - PARANOID PERSONALITY DISORDER [None]
  - PARKINSONISM [None]
  - PYREXIA [None]
  - RED BLOOD CELL SEDIMENTATION RATE INCREASED [None]
  - REFUSAL OF TREATMENT BY PATIENT [None]
  - SCHIZOPHRENIA [None]
  - SEDATION [None]
  - SOCIAL AVOIDANT BEHAVIOUR [None]
  - SPEECH DISORDER [None]
  - STUBBORNNESS [None]
  - TREMOR [None]
  - VOMITING [None]
  - WEIGHT DECREASED [None]
